FAERS Safety Report 9108446 (Version 1)
Quarter: 2013Q1

REPORT INFORMATION
  Report Type: Spontaneous
  Country: US (occurrence: US)
  Receive Date: 20130222
  Receipt Date: 20130222
  Transmission Date: 20140127
  Serious: Yes (Other)
  Sender: FDA-Public Use
  Company Number: PHEH2013US004007

PATIENT
  Sex: 0

DRUGS (3)
  1. TEKTURNA HCT [Suspect]
  2. TEKTURNA [Suspect]
  3. VALTURNA [Concomitant]

REACTIONS (1)
  - Cerebrovascular accident [Unknown]
